FAERS Safety Report 18177822 (Version 1)
Quarter: 2020Q3

REPORT INFORMATION
  Report Type: Spontaneous
  Country: FR (occurrence: FR)
  Receive Date: 20200821
  Receipt Date: 20200821
  Transmission Date: 20201103
  Serious: Yes (Hospitalization, Other)
  Sender: FDA-Public Use
  Company Number: FR-SA-2020SA219422

PATIENT

DRUGS (14)
  1. OFLOXACIN. [Suspect]
     Active Substance: OFLOXACIN
     Indication: BACTERIAL PROSTATITIS
     Dosage: 400 MG, QD
     Route: 048
     Dates: start: 20200519, end: 20200525
  2. LEVOTHYROX [Concomitant]
     Active Substance: LEVOTHYROXINE
     Dosage: UNK
  3. VANCOMYCIN [Suspect]
     Active Substance: VANCOMYCIN
     Indication: BACTERIAL PROSTATITIS
     Dosage: 2 G
     Route: 041
     Dates: start: 20200529, end: 20200621
  4. SPASFON [Concomitant]
     Dosage: UNK
  5. TAMSULOSIN [Concomitant]
     Active Substance: TAMSULOSIN
     Dosage: UNK
  6. IOMERON [Suspect]
     Active Substance: IOMEPROL
     Indication: COMPUTERISED TOMOGRAM
     Dosage: 1 DF
     Route: 042
     Dates: start: 20200526, end: 20200526
  7. RIFADINE [Suspect]
     Active Substance: RIFAMPIN
     Indication: BACTERIAL PROSTATITIS
     Dosage: 2 DF, QD
     Route: 048
     Dates: start: 20200603, end: 20200606
  8. FLECAINE [Concomitant]
     Active Substance: FLECAINIDE
     Dosage: UNK
  9. DUTASTERIDE. [Concomitant]
     Active Substance: DUTASTERIDE
     Dosage: UNK
  10. CACIT VITAMINE D3 [Concomitant]
     Active Substance: CALCIUM CARBONATE\CHOLECALCIFEROL
     Dosage: UNK
  11. MOVICOL [MACROGOL 4000;POTASSIUM CHLORIDE;SODIUM BICARBONATE;SODIUM CH [Concomitant]
     Dosage: UNK
  12. LERCAN [Concomitant]
     Active Substance: LERCANIDIPINE
     Dosage: UNK
  13. CEFTRIAXONE. [Suspect]
     Active Substance: CEFTRIAXONE
     Indication: BACTERIAL PROSTATITIS
     Dosage: 1 DF, QD
     Route: 041
     Dates: start: 20200526, end: 20200528
  14. PARACETAMOL [Concomitant]
     Active Substance: ACETAMINOPHEN
     Dosage: UNK

REACTIONS (1)
  - Drug reaction with eosinophilia and systemic symptoms [Recovering/Resolving]

NARRATIVE: CASE EVENT DATE: 20200626
